FAERS Safety Report 8369195-1 (Version None)
Quarter: 2012Q2

REPORT INFORMATION
  Report Type: 
  Country: None (occurrence: None)
  Receive Date: 20120518
  Receipt Date: 20120511
  Transmission Date: 20120825
  Serious: Yes (Hospitalization)
  Sender: FDA-Public Use
  Company Number: US-BAYER-2012-047523

PATIENT
  Age: 29 Year
  Sex: Female

DRUGS (13)
  1. LITHOBID [Concomitant]
     Dosage: UNK
     Route: 048
     Dates: start: 20020702, end: 20020908
  2. PROZAC [Concomitant]
  3. REMERON [Concomitant]
  4. VICODIN [Concomitant]
  5. LORAZEPAM [Concomitant]
  6. ZOLOFT [Concomitant]
  7. KLONOPIN [Concomitant]
     Dosage: 1 MG, UNK
     Route: 048
     Dates: start: 20020702
  8. YAZ [Suspect]
  9. SEROQUEL [Concomitant]
     Dosage: 100 MG, UNK
     Route: 048
     Dates: start: 20020702, end: 20020908
  10. YASMIN [Suspect]
  11. LEVBID [Concomitant]
  12. TRAZODONE HCL [Concomitant]
     Dosage: 100 MG, UNK
     Route: 048
     Dates: start: 20020702, end: 20020908
  13. FERROUS SULFATE TAB [Concomitant]

REACTIONS (3)
  - PULMONARY EMBOLISM [None]
  - DEEP VEIN THROMBOSIS [None]
  - CHOLECYSTITIS CHRONIC [None]
